FAERS Safety Report 22945370 (Version 8)
Quarter: 2025Q4

REPORT INFORMATION
  Report Type: Spontaneous
  Country: GB (occurrence: GB)
  Receive Date: 20230914
  Receipt Date: 20251216
  Transmission Date: 20260118
  Serious: Yes (Hospitalization, Other)
  Sender: SANDOZ
  Company Number: GB-MYLANLABS-2023M1078418

PATIENT
  Age: 38 Year
  Sex: Male

DRUGS (234)
  1. AMISULPRIDE [Suspect]
     Active Substance: AMISULPRIDE
     Dosage: 100 MILLIGRAM, QD
     Route: 065
     Dates: start: 200307
  2. AMISULPRIDE [Suspect]
     Active Substance: AMISULPRIDE
     Dosage: 100 MILLIGRAM, QD
     Route: 065
     Dates: start: 200407
  3. AMISULPRIDE [Suspect]
     Active Substance: AMISULPRIDE
     Dosage: 200 MILLIGRAM, BID
     Route: 065
     Dates: start: 201509
  4. AMISULPRIDE [Suspect]
     Active Substance: AMISULPRIDE
     Indication: Affective disorder
     Dosage: 200 MILLIGRAM, QD
     Route: 065
     Dates: start: 200301
  5. AMISULPRIDE [Suspect]
     Active Substance: AMISULPRIDE
     Dosage: 50 MILLIGRAM, BID
     Route: 065
     Dates: start: 2013
  6. AMISULPRIDE [Suspect]
     Active Substance: AMISULPRIDE
     Dosage: 50 MILLIGRAM, BID (50MG TWICE DAILY START DATE: JUL-2014)
     Route: 065
     Dates: start: 201407, end: 201503
  7. AMISULPRIDE [Suspect]
     Active Substance: AMISULPRIDE
     Dosage: 50 MILLIGRAM, QD
     Route: 065
     Dates: start: 200505
  8. AMISULPRIDE [Suspect]
     Active Substance: AMISULPRIDE
     Dosage: DAILY
     Route: 065
     Dates: start: 200411
  9. AMISULPRIDE [Suspect]
     Active Substance: AMISULPRIDE
     Dosage: 100MG IN THE MORNING, 400MG AT NIGHT START DATE: JUL-2016; ;
     Route: 065
     Dates: start: 201607
  10. AMISULPRIDE [Suspect]
     Active Substance: AMISULPRIDE
     Dosage: 200MG IN THE MORNING, 600MG AT NIGHT START DATE: JUN-2016
     Route: 065
     Dates: start: 201606
  11. AMISULPRIDE [Suspect]
     Active Substance: AMISULPRIDE
     Dosage: UNKNOWN DOSE IN THE MORNING, 100MG IN THE EVENING
     Route: 065
     Dates: start: 200311
  12. AMISULPRIDE [Suspect]
     Active Substance: AMISULPRIDE
     Dosage: 200MG TWICE DAILY, 600MG AT NIGHT
     Route: 065
     Dates: start: 201605
  13. AMISULPRIDE [Suspect]
     Active Substance: AMISULPRIDE
     Dosage: UNK (START DATE: JAN-2022
     Route: 065
     Dates: start: 202201
  14. AMISULPRIDE [Suspect]
     Active Substance: AMISULPRIDE
     Dosage: 100 MG, QD
     Route: 065
     Dates: start: 200307
  15. AMISULPRIDE [Suspect]
     Active Substance: AMISULPRIDE
     Dosage: 100 MG, QD
     Route: 065
     Dates: start: 200311
  16. AMISULPRIDE [Suspect]
     Active Substance: AMISULPRIDE
     Dosage: 100 MG, QD
     Route: 065
     Dates: start: 200407
  17. AMISULPRIDE [Suspect]
     Active Substance: AMISULPRIDE
     Dosage: 100 MG, QD
     Route: 065
     Dates: start: 200407
  18. AMISULPRIDE [Suspect]
     Active Substance: AMISULPRIDE
     Dosage: 100 MG, QD
     Route: 065
     Dates: start: 200407
  19. AMISULPRIDE [Suspect]
     Active Substance: AMISULPRIDE
     Dosage: 100 MILLIGRAM, QD
     Route: 065
     Dates: start: 200407
  20. AMISULPRIDE [Suspect]
     Active Substance: AMISULPRIDE
     Dosage: 100 MILLIGRAM, QD (100MG DAILY START DATE: JUL-2003)
     Route: 065
     Dates: start: 200307
  21. AMISULPRIDE [Suspect]
     Active Substance: AMISULPRIDE
     Dosage: 50 MILLIGRAM, BID (50MG TWICE DAILY START DATE: JUL-2014)
     Route: 065
  22. AMISULPRIDE [Suspect]
     Active Substance: AMISULPRIDE
     Dosage: 50 MILLIGRAM, BID (50MG TWICE DAILY START DATE: JUL-2014)
     Route: 065
  23. AMISULPRIDE [Suspect]
     Active Substance: AMISULPRIDE
     Dosage: UNK100 MILLIGRAM, QD (100MG DAILY START DATE: JUL-2003)
     Route: 065
     Dates: start: 200307
  24. AMISULPRIDE [Suspect]
     Active Substance: AMISULPRIDE
     Dosage: 200 MG, QD
     Route: 065
     Dates: start: 200301
  25. AMISULPRIDE [Suspect]
     Active Substance: AMISULPRIDE
     Dosage: 200 MG, QD
     Route: 065
     Dates: start: 200301
  26. AMISULPRIDE [Suspect]
     Active Substance: AMISULPRIDE
     Dosage: 200 MILLIGRAM, BID (200MG TWICE DAILY START DATE: SEP-2015)
     Route: 065
     Dates: start: 201509
  27. AMISULPRIDE [Suspect]
     Active Substance: AMISULPRIDE
     Dosage: 200 MG, BID
     Route: 065
     Dates: start: 201509
  28. AMISULPRIDE [Suspect]
     Active Substance: AMISULPRIDE
     Dosage: 200 MG, BID
     Route: 065
     Dates: start: 201509
  29. AMISULPRIDE [Suspect]
     Active Substance: AMISULPRIDE
     Dosage: 200 MG, BID
     Route: 065
     Dates: start: 201605
  30. AMISULPRIDE [Suspect]
     Active Substance: AMISULPRIDE
     Dosage: 200 MILLIGRAM, BID
     Route: 065
  31. AMISULPRIDE [Suspect]
     Active Substance: AMISULPRIDE
     Dosage: 200MG TWICE DAILY, 600MG AT NIGHT
     Route: 065
     Dates: start: 201605
  32. AMISULPRIDE [Suspect]
     Active Substance: AMISULPRIDE
     Dosage: 200MG TWICE DAILY, 600MG AT NIGHT
     Route: 065
     Dates: start: 201605
  33. AMISULPRIDE [Suspect]
     Active Substance: AMISULPRIDE
     Dosage: 200MG TWICE DAILY, 600MG AT NIGHT
     Route: 065
     Dates: start: 201605
  34. AMISULPRIDE [Suspect]
     Active Substance: AMISULPRIDE
     Dosage: 50 MG, QD
     Route: 065
     Dates: start: 200505
  35. AMISULPRIDE [Suspect]
     Active Substance: AMISULPRIDE
     Dosage: 50 MILLIGRAM, BID (50MG TWICE DAILY START DATE:-2013)
     Route: 065
     Dates: start: 2013
  36. AMISULPRIDE [Suspect]
     Active Substance: AMISULPRIDE
     Dosage: 50 MG, BID
     Route: 065
     Dates: start: 2013
  37. AMISULPRIDE [Suspect]
     Active Substance: AMISULPRIDE
     Dosage: 50 MG, BID
     Route: 065
     Dates: start: 2013
  38. AMISULPRIDE [Suspect]
     Active Substance: AMISULPRIDE
     Dosage: 50 MG, BID
     Route: 065
     Dates: start: 201407, end: 201503
  39. AMISULPRIDE [Suspect]
     Active Substance: AMISULPRIDE
     Dosage: 50 MILLIGRAM, BID (50MG TWICE DAILY START DATE: JUL-2014)
     Route: 065
  40. AMISULPRIDE [Suspect]
     Active Substance: AMISULPRIDE
     Dosage: UNK UNK, QD
     Route: 065
     Dates: start: 200411
  41. AMISULPRIDE [Suspect]
     Active Substance: AMISULPRIDE
     Dosage: UNK100 MG MORNING 400 MG EVENING
     Route: 065
     Dates: start: 201607
  42. AMISULPRIDE [Suspect]
     Active Substance: AMISULPRIDE
     Dosage: 100MG IN THE MORNING, 400MG AT NIGHT
     Route: 065
     Dates: start: 201607
  43. AMISULPRIDE [Suspect]
     Active Substance: AMISULPRIDE
     Dosage: 100MG IN THE MORNING, 400MG AT NIGHT START DATE: JUL-2016
     Route: 065
     Dates: start: 201607
  44. AMISULPRIDE [Suspect]
     Active Substance: AMISULPRIDE
     Dosage: 100MG IN THE MORNING, 400MG AT NIGHT START DATE: JUL-2016
     Route: 065
     Dates: start: 201607
  45. AMISULPRIDE [Suspect]
     Active Substance: AMISULPRIDE
     Dosage: 200MG IN THE MORNING, 600MG AT NIGH
     Route: 065
     Dates: start: 201606
  46. AMISULPRIDE [Suspect]
     Active Substance: AMISULPRIDE
     Dosage: 200MG IN THE MORNING, 600MG AT NIGHT START DATE: JUN-2016
     Route: 065
     Dates: start: 201606
  47. AMISULPRIDE [Suspect]
     Active Substance: AMISULPRIDE
     Dosage: 200MG IN THE MORNING, 600MG AT NIGHT START DATE: JUN-2016
     Route: 065
  48. AMISULPRIDE [Suspect]
     Active Substance: AMISULPRIDE
     Dosage: 200MG TWICE DAILY, 600MG AT NIGHT START DATE: MAY-2016
     Route: 065
     Dates: start: 201605
  49. AMISULPRIDE [Suspect]
     Active Substance: AMISULPRIDE
     Dosage: UNK
     Route: 065
     Dates: start: 202201
  50. AMISULPRIDE [Suspect]
     Active Substance: AMISULPRIDE
     Dosage: DAILY (START DATE: NOV-2004)
     Route: 065
     Dates: start: 2004
  51. AMISULPRIDE [Suspect]
     Active Substance: AMISULPRIDE
     Dosage: 100 MILLIGRAM, QD
     Route: 065
     Dates: start: 200307
  52. AMISULPRIDE [Suspect]
     Active Substance: AMISULPRIDE
     Dosage: 100 MILLIGRAM, QD
     Route: 065
     Dates: start: 200407
  53. AMISULPRIDE [Suspect]
     Active Substance: AMISULPRIDE
     Dosage: 200 MILLIGRAM, BID
     Route: 065
     Dates: start: 201509
  54. AMISULPRIDE [Suspect]
     Active Substance: AMISULPRIDE
     Dosage: 200 MILLIGRAM, QD
     Route: 065
     Dates: start: 200301
  55. AMISULPRIDE [Suspect]
     Active Substance: AMISULPRIDE
     Dosage: 50 MILLIGRAM, BID
     Route: 065
     Dates: start: 2013
  56. AMISULPRIDE [Suspect]
     Active Substance: AMISULPRIDE
     Dosage: 50 MILLIGRAM, BID (50MG TWICE DAILY START DATE: JUL-2014)
     Route: 065
     Dates: start: 201407, end: 201503
  57. AMISULPRIDE [Suspect]
     Active Substance: AMISULPRIDE
     Dosage: 50 MILLIGRAM, QD
     Route: 065
     Dates: start: 200505
  58. AMISULPRIDE [Suspect]
     Active Substance: AMISULPRIDE
     Route: 065
  59. AMISULPRIDE [Suspect]
     Active Substance: AMISULPRIDE
     Dosage: 100MG IN THE MORNING, 400MG AT NIGHT START DATE: JUL-2016; ;
     Route: 065
     Dates: start: 201607
  60. AMISULPRIDE [Suspect]
     Active Substance: AMISULPRIDE
     Dosage: 200MG IN THE MORNING, 600MG AT NIGHT START DATE: JUN-2016
     Route: 065
     Dates: start: 201606
  61. AMISULPRIDE [Suspect]
     Active Substance: AMISULPRIDE
     Dosage: 200MG TWICE DAILY, 600MG AT NIGHT
     Route: 065
     Dates: start: 201605
  62. AMISULPRIDE [Suspect]
     Active Substance: AMISULPRIDE
     Dosage: UNK (START DATE: JAN-2022
     Route: 065
     Dates: start: 202201
  63. AMISULPRIDE [Suspect]
     Active Substance: AMISULPRIDE
     Dosage: DAILY
     Route: 065
     Dates: start: 200411
  64. AMISULPRIDE [Suspect]
     Active Substance: AMISULPRIDE
     Dosage: DAILY (START DATE: NOV-2004)
     Route: 065
  65. AMISULPRIDE [Suspect]
     Active Substance: AMISULPRIDE
     Indication: Affective disorder
     Dosage: UNKNOWN DOSE IN THE MORNING, 100MG IN THE EVENING
     Route: 065
     Dates: start: 200311
  66. CARIPRAZINE [Suspect]
     Active Substance: CARIPRAZINE
     Indication: Product used for unknown indication
     Dosage: 3 MILLIGRAM, QD (3MG DAILY START DATE: AUG-2022)LAST ADMIN DATE WAS 2022
     Route: 048
     Dates: start: 202208, end: 2022
  67. CARIPRAZINE [Suspect]
     Active Substance: CARIPRAZINE
     Dosage: 6 MILLIGRAM, QD (6MG DAILY START DATE: DEC-2022)
     Route: 065
     Dates: start: 202212, end: 202303
  68. CARIPRAZINE [Suspect]
     Active Substance: CARIPRAZINE
     Dosage: 6 MILLIGRAM, QD (6MG DAILY START DATE: MAR-2023)
     Route: 065
     Dates: start: 202303, end: 202305
  69. CITALOPRAM [Suspect]
     Active Substance: CITALOPRAM
     Dosage: 20 MG, QD
     Route: 065
     Dates: start: 200301
  70. CITALOPRAM [Suspect]
     Active Substance: CITALOPRAM
     Dosage: 20 MG, QD
     Route: 065
     Dates: start: 200311
  71. CITALOPRAM [Suspect]
     Active Substance: CITALOPRAM
     Dosage: 20 MILLIGRAM, QD (20MG DAILY START DATE: JAN-2003)
     Route: 065
     Dates: start: 200301, end: 2003
  72. CITALOPRAM [Suspect]
     Active Substance: CITALOPRAM
     Dosage: 20 MILLIGRAM, QD (20MG DAILY START DATE: JAN-2003)
     Route: 065
     Dates: start: 200301
  73. CITALOPRAM [Suspect]
     Active Substance: CITALOPRAM
     Dosage: 20 MILLIGRAM, QD (20MG DAILY START DATE: JAN-2003)
     Route: 065
     Dates: start: 200301
  74. CITALOPRAM [Suspect]
     Active Substance: CITALOPRAM
     Dosage: 20 MILLIGRAM, QD (20MG DAILY START DATE: JUL-2004)
     Route: 065
     Dates: start: 200407
  75. CITALOPRAM [Suspect]
     Active Substance: CITALOPRAM
     Dosage: 20 MILLIGRAM, QD (20MG DAILY START DATE: JUL-2004)
     Route: 065
     Dates: start: 200407
  76. CITALOPRAM [Suspect]
     Active Substance: CITALOPRAM
     Dosage: 20 MILLIGRAM, QD (20MG DAILY START DATE: JUL-2004)
     Route: 065
  77. CITALOPRAM [Suspect]
     Active Substance: CITALOPRAM
     Dosage: 20 MILLIGRAM, QD (20MG DAILY START DATE: MAY-2005)
     Route: 065
     Dates: start: 200505
  78. CITALOPRAM [Suspect]
     Active Substance: CITALOPRAM
     Dosage: 20 MILLIGRAM, QD (20MG DAILY START DATE: MAY-2005)
     Route: 065
     Dates: start: 200505
  79. CITALOPRAM [Suspect]
     Active Substance: CITALOPRAM
     Dosage: 20 MILLIGRAM, QD (20MG DAILY START DATE: MAY-2005)
     Route: 065
  80. CITALOPRAM [Suspect]
     Active Substance: CITALOPRAM
     Dosage: 20 MILLIGRAM, QD (20MG DAILY START DATE: NOV-2003)
     Route: 065
     Dates: start: 200311
  81. CITALOPRAM [Suspect]
     Active Substance: CITALOPRAM
     Dosage: 20 MILLIGRAM, QD (20MG DAILY START DATE: NOV-2003)
     Route: 065
  82. CITALOPRAM [Suspect]
     Active Substance: CITALOPRAM
     Dosage: 20 MILLIGRAM, QD (20MG DAILY START DATE: NOV-2004)
     Route: 065
     Dates: start: 200411
  83. CITALOPRAM [Suspect]
     Active Substance: CITALOPRAM
     Dosage: 20 MILLIGRAM, QD (20MG DAILY START DATE: NOV-2004)
     Route: 065
     Dates: start: 200411
  84. CITALOPRAM [Suspect]
     Active Substance: CITALOPRAM
     Dosage: 20 MILLIGRAM, QD (20MG DAILY START DATE: NOV-2004)
     Route: 065
  85. CITALOPRAM [Suspect]
     Active Substance: CITALOPRAM
     Dosage: 30 MILLIGRAM, QD (30MG DAILY START DATE: JUL-2014)
     Route: 065
     Dates: start: 201407, end: 201503
  86. CITALOPRAM [Suspect]
     Active Substance: CITALOPRAM
     Dosage: 30 MILLIGRAM, QD (30MG DAILY START DATE: JUL-2014)
     Route: 065
     Dates: start: 201503
  87. CITALOPRAM [Suspect]
     Active Substance: CITALOPRAM
     Dosage: OVERDOSE: UNKNOWN DOSE
     Route: 065
     Dates: start: 2003, end: 2003
  88. CITALOPRAM [Suspect]
     Active Substance: CITALOPRAM
     Indication: Depressed mood
     Dosage: UNK (START DATE: 2013)
     Route: 065
  89. CITALOPRAM [Suspect]
     Active Substance: CITALOPRAM
     Dosage: UNK (START DATE: 2013)
     Route: 065
     Dates: start: 2013
  90. CITALOPRAM [Suspect]
     Active Substance: CITALOPRAM
     Dosage: UNK (START DATE: 2013)
     Route: 065
     Dates: start: 2013
  91. CLOZARIL [Suspect]
     Active Substance: CLOZAPINE
     Dosage: 200 MILLIGRAM, QD (200MG IN THE EVENING START DATE: -DEC-2010)
     Route: 065
     Dates: start: 201012, end: 201201
  92. CLOZARIL [Suspect]
     Active Substance: CLOZAPINE
     Dosage: 225 MILLIGRAM, BID (225MG TWICE DAILY START DATE: -OCT-2019)
     Route: 065
     Dates: start: 201910, end: 20220112
  93. CLOZARIL [Suspect]
     Active Substance: CLOZAPINE
     Dosage: 225 MILLIGRAM, QD (225MG IN THE EVENING START DATE: -AUG-2010)
     Route: 065
     Dates: start: 201008
  94. CLOZARIL [Suspect]
     Active Substance: CLOZAPINE
     Dosage: 225 MG, BID
     Route: 065
     Dates: start: 201910, end: 20220112
  95. CLOZARIL [Suspect]
     Active Substance: CLOZAPINE
     Dosage: 250 MILLIGRAM, QD (250MG IN THE EVENING START DATE: -SEP-2009)
     Route: 065
     Dates: start: 200909
  96. CLOZARIL [Suspect]
     Active Substance: CLOZAPINE
     Dosage: 250 MILLIGRAM, QD (250MG IN THE EVENING START DATE: -SEP-2009)
     Route: 065
     Dates: start: 200909
  97. CLOZARIL [Suspect]
     Active Substance: CLOZAPINE
     Dosage: 275 MG, QD
     Route: 065
     Dates: start: 200811
  98. CLOZARIL [Suspect]
     Active Substance: CLOZAPINE
     Indication: Product used for unknown indication
     Dosage: 275 MILLIGRAM, QD (275MG IN THE EVENING START DATE: -NOV-2008)
     Route: 065
     Dates: start: 200811
  99. CLOZARIL [Suspect]
     Active Substance: CLOZAPINE
     Indication: Schizoaffective disorder
     Dosage: 325 MILLIGRAM, QD (325MG IN THE EVENING START DATE: -JUN-2008)
     Route: 065
     Dates: start: 200806
  100. CLOZARIL [Suspect]
     Active Substance: CLOZAPINE
     Dosage: 325 MILLIGRAM, QD (325MG IN THE EVENING START DATE: -JUN-2008)
     Route: 065
     Dates: start: 200806
  101. CLOZARIL [Suspect]
     Active Substance: CLOZAPINE
     Dosage: 350 MG, QD
     Route: 065
     Dates: start: 200605
  102. CLOZARIL [Suspect]
     Active Substance: CLOZAPINE
     Dosage: 350 MILLIGRAM, QD (350MG IN THE EVENING START DATE: -MAY-2006)
     Route: 065
     Dates: start: 200605
  103. CLOZARIL [Suspect]
     Active Substance: CLOZAPINE
     Dosage: 375 MG, QD
     Route: 065
     Dates: start: 200605
  104. CLOZARIL [Suspect]
     Active Substance: CLOZAPINE
     Dosage: 375 MILLIGRAM, QD (375MG IN THE EVENING  START DATE:-MAY-2006
     Route: 065
     Dates: start: 200605
  105. CLOZARIL [Suspect]
     Active Substance: CLOZAPINE
     Dosage: 400 MG, QD
     Route: 065
     Dates: start: 201701
  106. CLOZARIL [Suspect]
     Active Substance: CLOZAPINE
     Dosage: 400 MILLIGRAM, QD (400MG AT NIGHT)  START DATE: -JAN-2017
     Route: 065
     Dates: start: 201701
  107. CLOZARIL [Suspect]
     Active Substance: CLOZAPINE
     Dosage: 450 MG, QD
     Route: 065
     Dates: start: 201910, end: 20220112
  108. CLOZARIL [Suspect]
     Active Substance: CLOZAPINE
     Dosage: 450 MILLIGRAM, QD (450MG AT NIGHT START DATE:-2019)
     Route: 065
     Dates: start: 2019
  109. CLOZARIL [Suspect]
     Active Substance: CLOZAPINE
     Dosage: 500 MILLIGRAM, QD (500MG DAILY START DATE: -2013)
     Route: 065
     Dates: start: 2013
  110. CLOZARIL [Suspect]
     Active Substance: CLOZAPINE
     Dosage: 500 MILLIGRAM, QD (500MG DAILY START DATE: -2013)
     Route: 065
     Dates: start: 2013
  111. CLOZARIL [Suspect]
     Active Substance: CLOZAPINE
     Dosage: 100MG IN THE MORNING, 300MG AT NIGHT START DATE: -JUL-2014
     Route: 065
     Dates: start: 201407, end: 201503
  112. CLOZARIL [Suspect]
     Active Substance: CLOZAPINE
     Dosage: 100MG IN THE MORNING, 400MG IN THE EVENING
     Route: 065
     Dates: start: 200301
  113. CLOZARIL [Suspect]
     Active Substance: CLOZAPINE
     Dosage: 100MG IN THE MORNING, 400MG IN THE EVENING
     Route: 065
     Dates: start: 200307
  114. CLOZARIL [Suspect]
     Active Substance: CLOZAPINE
     Dosage: 100MG IN THE MORNING, 400MG IN THE EVENING
     Route: 065
     Dates: start: 200311
  115. CLOZARIL [Suspect]
     Active Substance: CLOZAPINE
     Dosage: 100MG IN THE MORNING, 400MG IN THE EVENING
     Route: 065
     Dates: start: 200407
  116. CLOZARIL [Suspect]
     Active Substance: CLOZAPINE
     Dosage: 100MG IN THE MORNING, 400MG IN THE EVENING
     Route: 065
     Dates: start: 200505
  117. CLOZARIL [Suspect]
     Active Substance: CLOZAPINE
     Dosage: 100MG IN THE MORNING, 400MG IN THE EVENING  START DATE: NOV-2005
     Route: 065
     Dates: start: 200511
  118. CLOZARIL [Suspect]
     Active Substance: CLOZAPINE
     Indication: Schizophrenia
     Dosage: 100MG IN THE MORNING, 400MG IN THE EVENING START DATE: -JAN-2003LAST ADMIN DATE WAS 2003
     Route: 065
     Dates: start: 200301
  119. CLOZARIL [Suspect]
     Active Substance: CLOZAPINE
     Dosage: 100MG IN THE MORNING, 400MG IN THE EVENING START DATE: -MAY-2005LAST ADMIN DATE WAS 2005
     Route: 048
     Dates: start: 200505
  120. CLOZARIL [Suspect]
     Active Substance: CLOZAPINE
     Dosage: 100MG IN THE MORNING, 400MG IN THE EVENING START DATE: -NOV-2004
     Route: 065
     Dates: start: 200411
  121. CLOZARIL [Suspect]
     Active Substance: CLOZAPINE
     Dosage: 100MG IN THE MORNING, 400MG IN THE EVENING START DATE: JUL-2003
     Route: 065
     Dates: start: 200307
  122. CLOZARIL [Suspect]
     Active Substance: CLOZAPINE
     Dosage: 100MG IN THE MORNING, 400MG IN THE EVENING START DATE: JUL-2003LAST ADMIN DATE WAS 2023
     Route: 065
     Dates: start: 200307
  123. CLOZARIL [Suspect]
     Active Substance: CLOZAPINE
     Dosage: 100MG IN THE MORNING, 400MG IN THE EVENING START DATE: NOV-2003
     Route: 065
     Dates: start: 200311
  124. CLOZARIL [Suspect]
     Active Substance: CLOZAPINE
     Dosage: 100MG IN THE MORNING, 400MG IN THE EVENING START DATE: NOV-2005
     Route: 065
     Dates: start: 200511
  125. CLOZARIL [Suspect]
     Active Substance: CLOZAPINE
     Dosage: 100MG IN THE MORNING, 400MG IN THE EVENING START DATE:-JUL-2004LAST ADMIN DATE WAS 2004
     Route: 065
     Dates: start: 200407
  126. CLOZARIL [Suspect]
     Active Substance: CLOZAPINE
     Dosage: 200MG IN THE MORNING, 300MG AT NIGHT
     Route: 065
     Dates: start: 201605
  127. CLOZARIL [Suspect]
     Active Substance: CLOZAPINE
     Dosage: 200MG IN THE MORNING, 300MG AT NIGHT
     Route: 065
     Dates: start: 201606
  128. CLOZARIL [Suspect]
     Active Substance: CLOZAPINE
     Dosage: 200MG IN THE MORNING, 300MG AT NIGHT
     Route: 065
     Dates: start: 201607
  129. CLOZARIL [Suspect]
     Active Substance: CLOZAPINE
     Dosage: 200MG IN THE MORNING, 300MG AT NIGHT
     Route: 065
     Dates: start: 201611
  130. CLOZARIL [Suspect]
     Active Substance: CLOZAPINE
     Dosage: 200MG IN THE MORNING, 300MG AT NIGHT  START DATE: -JUL-2016
     Route: 065
     Dates: start: 201607
  131. CLOZARIL [Suspect]
     Active Substance: CLOZAPINE
     Dosage: 200MG IN THE MORNING, 300MG AT NIGHT START DATE: -JUN-2016
     Route: 065
     Dates: start: 201606
  132. CLOZARIL [Suspect]
     Active Substance: CLOZAPINE
     Dosage: 200MG IN THE MORNING, 300MG AT NIGHT START DATE: -JUN-2016
     Route: 065
     Dates: start: 201607
  133. CLOZARIL [Suspect]
     Active Substance: CLOZAPINE
     Dosage: 200MG IN THE MORNING, 300MG AT NIGHT START DATE: -NOV-2016)
     Route: 065
     Dates: start: 201611
  134. CLOZARIL [Suspect]
     Active Substance: CLOZAPINE
     Dosage: 200MG IN THE MORNING, 300MG AT NIGHT START DATE:-MAY-2016LAST ADMIN DATE WAS 2016
     Route: 065
     Dates: start: 201605
  135. CLOZARIL [Suspect]
     Active Substance: CLOZAPINE
     Dosage: 50MG IN THE MORNING, 250MG IN THE EVENING
     Route: 065
     Dates: start: 201509
  136. CLOZARIL [Suspect]
     Active Substance: CLOZAPINE
     Dosage: 50MG IN THE MORNING, 250MG IN THE EVENING START DATE: -SEP-2015
     Route: 065
     Dates: start: 201509
  137. CLOZARIL [Suspect]
     Active Substance: CLOZAPINE
     Dosage: UNK
     Route: 048
     Dates: start: 20230720
  138. CLOZARIL [Suspect]
     Active Substance: CLOZAPINE
     Dosage: UNK
     Route: 065
     Dates: start: 200411
  139. CLOZARIL [Suspect]
     Active Substance: CLOZAPINE
     Dosage: UNK (START DATE: 20-JUL-2023)
     Route: 048
     Dates: start: 20230720
  140. CARIPRAZINE [Suspect]
     Active Substance: CARIPRAZINE
     Indication: Product used for unknown indication
     Dosage: 3 MG, QD
     Route: 050
     Dates: start: 202208, end: 2022
  141. CARIPRAZINE [Suspect]
     Active Substance: CARIPRAZINE
     Dosage: 6 MG, QD
     Route: 050
     Dates: start: 202212, end: 202303
  142. CARIPRAZINE [Suspect]
     Active Substance: CARIPRAZINE
     Dosage: 6 MG, QD
     Route: 050
     Dates: start: 202303, end: 202305
  143. CITALOPRAM [Suspect]
     Active Substance: CITALOPRAM
     Dosage: 20 MILLIGRAM, QD
     Route: 065
  144. CITALOPRAM [Suspect]
     Active Substance: CITALOPRAM
     Indication: Depressed mood
     Dosage: 20 MILLIGRAM, QD (20MG DAILY START DATE: JAN-2003)
     Route: 065
     Dates: start: 200301, end: 2003
  145. CITALOPRAM [Suspect]
     Active Substance: CITALOPRAM
     Dosage: 20 MILLIGRAM, QD (20MG DAILY START DATE: JUL-2004)
     Route: 065
     Dates: start: 200407
  146. CITALOPRAM [Suspect]
     Active Substance: CITALOPRAM
     Dosage: 20 MILLIGRAM, QD (20MG DAILY START DATE: MAY-2005)
     Route: 065
     Dates: start: 200505
  147. CITALOPRAM [Suspect]
     Active Substance: CITALOPRAM
     Dosage: 20 MILLIGRAM, QD (20MG DAILY START DATE: NOV-2003)
     Route: 065
     Dates: start: 200311
  148. CITALOPRAM [Suspect]
     Active Substance: CITALOPRAM
     Dosage: 20 MILLIGRAM, QD (20MG DAILY START DATE: NOV-2004)
     Route: 065
     Dates: start: 200411
  149. CITALOPRAM [Suspect]
     Active Substance: CITALOPRAM
     Dosage: 30 MILLIGRAM, QD
     Route: 065
  150. CITALOPRAM [Suspect]
     Active Substance: CITALOPRAM
     Dosage: 30 MILLIGRAM, QD (30MG DAILY START DATE: JUL-2014)
     Route: 065
     Dates: start: 201407, end: 201503
  151. CITALOPRAM [Suspect]
     Active Substance: CITALOPRAM
     Dosage: OVERDOSE: UNKNOWN DOSE
     Route: 065
     Dates: start: 2003, end: 2003
  152. CITALOPRAM [Suspect]
     Active Substance: CITALOPRAM
     Dosage: UNK (START DATE: 2013)
     Route: 065
     Dates: start: 2013
  153. CLOZARIL [Suspect]
     Active Substance: CLOZAPINE
     Dosage: 200 MILLIGRAM, QD (200MG IN THE EVENING START DATE: -DEC-2010)
     Route: 065
     Dates: start: 201012, end: 201201
  154. CLOZARIL [Suspect]
     Active Substance: CLOZAPINE
     Dosage: 225 MILLIGRAM, BID (225MG TWICE DAILY START DATE: -OCT-2019)
     Route: 065
     Dates: start: 201910, end: 20220112
  155. CLOZARIL [Suspect]
     Active Substance: CLOZAPINE
     Dosage: 225 MILLIGRAM, QD (225MG IN THE EVENING START DATE: -AUG-2010)
     Route: 065
     Dates: start: 201008
  156. CLOZARIL [Suspect]
     Active Substance: CLOZAPINE
     Dosage: 250 MILLIGRAM, QD (250MG IN THE EVENING START DATE: -SEP-2009)
     Route: 065
     Dates: start: 200909
  157. CLOZARIL [Suspect]
     Active Substance: CLOZAPINE
     Dosage: 275 MILLIGRAM, QD (275MG IN THE EVENING START DATE: -NOV-2008)
     Route: 065
     Dates: start: 200811
  158. CLOZARIL [Suspect]
     Active Substance: CLOZAPINE
     Dosage: 325 MILLIGRAM, QD (325MG IN THE EVENING START DATE: -JUN-2008)
     Route: 065
     Dates: start: 200806
  159. CLOZARIL [Suspect]
     Active Substance: CLOZAPINE
     Dosage: 350 MILLIGRAM, QD (350MG IN THE EVENING START DATE: -MAY-2006)
     Route: 065
     Dates: start: 200605
  160. CLOZARIL [Suspect]
     Active Substance: CLOZAPINE
     Dosage: 375 MILLIGRAM, QD (375MG IN THE EVENING  START DATE:-MAY-2006
     Route: 065
     Dates: start: 200605
  161. CLOZARIL [Suspect]
     Active Substance: CLOZAPINE
     Indication: Schizophrenia
     Dosage: 400 MILLIGRAM, QD (400MG AT NIGHT)  START DATE: -JAN-2017
     Route: 065
     Dates: start: 201701
  162. CLOZARIL [Suspect]
     Active Substance: CLOZAPINE
     Dosage: 450 MILLIGRAM, QD (450MG AT NIGHT START DATE:-2019)
     Route: 065
     Dates: start: 2019
  163. CLOZARIL [Suspect]
     Active Substance: CLOZAPINE
     Dosage: 500 MILLIGRAM, QD (500MG DAILY START DATE: -2013)
     Route: 065
     Dates: start: 2013
  164. CLOZARIL [Suspect]
     Active Substance: CLOZAPINE
     Dosage: 100MG IN THE MORNING, 300MG AT NIGHT START DATE: -JUL-2014
     Route: 065
     Dates: start: 201407, end: 201503
  165. CLOZARIL [Suspect]
     Active Substance: CLOZAPINE
     Dosage: 100MG IN THE MORNING, 400MG IN THE EVENING  START DATE: NOV-2005
     Route: 065
     Dates: start: 200511
  166. CLOZARIL [Suspect]
     Active Substance: CLOZAPINE
     Dosage: 100MG IN THE MORNING, 400MG IN THE EVENING START DATE: -JAN-2003LAST ADMIN DATE WAS 2003
     Route: 065
     Dates: start: 200301
  167. CLOZARIL [Suspect]
     Active Substance: CLOZAPINE
     Dosage: 100MG IN THE MORNING, 400MG IN THE EVENING START DATE: -MAY-2005LAST ADMIN DATE WAS 2005
     Route: 065
     Dates: start: 200505
  168. CLOZARIL [Suspect]
     Active Substance: CLOZAPINE
     Dosage: 100MG IN THE MORNING, 400MG IN THE EVENING START DATE: -NOV-2004
     Route: 065
     Dates: start: 200411
  169. CLOZARIL [Suspect]
     Active Substance: CLOZAPINE
     Dosage: 100MG IN THE MORNING, 400MG IN THE EVENING START DATE: JUL-2003LAST ADMIN DATE WAS 2023
     Route: 065
     Dates: start: 200307
  170. CLOZARIL [Suspect]
     Active Substance: CLOZAPINE
     Dosage: 100MG IN THE MORNING, 400MG IN THE EVENING START DATE: NOV-2003
     Route: 065
     Dates: start: 200311
  171. CLOZARIL [Suspect]
     Active Substance: CLOZAPINE
     Dosage: 100MG IN THE MORNING, 400MG IN THE EVENING START DATE:-JUL-2004LAST ADMIN DATE WAS 2004
     Route: 065
     Dates: start: 200407
  172. CLOZARIL [Suspect]
     Active Substance: CLOZAPINE
     Dosage: 200MG IN THE MORNING, 300MG AT NIGHT  START DATE: -JUL-2016
     Route: 065
     Dates: start: 201607
  173. CLOZARIL [Suspect]
     Active Substance: CLOZAPINE
     Dosage: 200MG IN THE MORNING, 300MG AT NIGHT START DATE: -JUN-2016
     Route: 065
     Dates: start: 201606
  174. CLOZARIL [Suspect]
     Active Substance: CLOZAPINE
     Dosage: 200MG IN THE MORNING, 300MG AT NIGHT START DATE: -NOV-2016)
     Route: 065
     Dates: start: 201611
  175. CLOZARIL [Suspect]
     Active Substance: CLOZAPINE
     Dosage: 200MG IN THE MORNING, 300MG AT NIGHT START DATE:-MAY-2016LAST ADMIN DATE WAS 2016
     Route: 065
     Dates: start: 201605
  176. CLOZARIL [Suspect]
     Active Substance: CLOZAPINE
     Dosage: 50MG IN THE MORNING, 250MG IN THE EVENING START DATE: -SEP-2015
     Route: 065
     Dates: start: 201509
  177. CLOZARIL [Suspect]
     Active Substance: CLOZAPINE
     Dosage: UNK (START DATE: 20-JUL-2023)
     Route: 048
     Dates: start: 20230720
  178. FERROUS SULFATE [Suspect]
     Active Substance: FERROUS SULFATE
     Dosage: 1 DOSAGE FORM, BID (ONE TABLET TWICE DAILY)
     Route: 065
  179. FERROUS SULFATE [Suspect]
     Active Substance: FERROUS SULFATE
     Indication: Product used for unknown indication
     Dosage: UNK
     Route: 065
  180. FERROUS SULFATE\FOLIC ACID [Suspect]
     Active Substance: FERROUS SULFATE\FOLIC ACID
     Indication: Product used for unknown indication
     Dosage: UNK
     Route: 065
  181. FLUPENTIXOL DECANOATE [Suspect]
     Active Substance: FLUPENTIXOL DECANOATE
     Dosage: 200 MILLIGRAM, QW (200MG WEEKLY START DATE: DEC-2022)
     Route: 050
     Dates: start: 202212, end: 202303
  182. FLUPENTIXOL DECANOATE [Suspect]
     Active Substance: FLUPENTIXOL DECANOATE
     Dosage: 200 MILLIGRAM, QW (200MG WEEKLY START DATE:MAR-2023)
     Route: 065
     Dates: start: 202303, end: 202305
  183. FLUPENTIXOL DECANOATE [Suspect]
     Active Substance: FLUPENTIXOL DECANOATE
     Indication: Product used for unknown indication
     Dosage: 400 MILLIGRAM, QW (400MG WEEKLY START DATE: AUG-2022)LAST ADMIN DATE WAS 2022
     Route: 050
     Dates: start: 202208, end: 2022
  184. FLUPENTIXOL DECANOATE [Suspect]
     Active Substance: FLUPENTIXOL DECANOATE
     Dosage: 200 MILLIGRAM, QW (200MG WEEKLY START DATE: DEC-2022)
     Route: 065
     Dates: start: 202212, end: 202303
  185. FLUPENTIXOL DECANOATE [Suspect]
     Active Substance: FLUPENTIXOL DECANOATE
     Dosage: 200 MILLIGRAM, QW (200MG WEEKLY START DATE: DEC-2022)
     Route: 065
     Dates: start: 202212, end: 202303
  186. FLUPENTIXOL DECANOATE [Suspect]
     Active Substance: FLUPENTIXOL DECANOATE
     Dosage: 200 MILLIGRAM, QW (200MG WEEKLY START DATE:MAR-2023)
     Route: 065
     Dates: start: 202303, end: 202305
  187. FLUPENTIXOL DECANOATE [Suspect]
     Active Substance: FLUPENTIXOL DECANOATE
     Dosage: 200 MILLIGRAM, QW (200MG WEEKLY START DATE:MAR-2023)
     Route: 065
     Dates: start: 202303, end: 202305
  188. FLUPENTIXOL DECANOATE [Suspect]
     Active Substance: FLUPENTIXOL DECANOATE
     Dosage: 400 MILLIGRAM, QW (400MG WEEKLY START DATE: AUG-2022)
     Route: 065
     Dates: start: 202208
  189. FLUPENTIXOL DECANOATE [Suspect]
     Active Substance: FLUPENTIXOL DECANOATE
     Dosage: 400 MILLIGRAM, QW (400MG WEEKLY START DATE: AUG-2022)LAST ADMIN DATE WAS 2022
     Route: 065
     Dates: start: 202208
  190. HALDOL [Suspect]
     Active Substance: HALOPERIDOL
     Route: 065
  191. HALDOL [Suspect]
     Active Substance: HALOPERIDOL
     Indication: Product used for unknown indication
     Dosage: UNK
     Route: 065
  192. HALOPERIDOL [Suspect]
     Active Substance: HALOPERIDOL
     Indication: Product used for unknown indication
     Route: 065
  193. HALOPERIDOL [Suspect]
     Active Substance: HALOPERIDOL
     Indication: Product used for unknown indication
     Dosage: UNK
     Route: 065
  194. LORAZEPAM [Suspect]
     Active Substance: LORAZEPAM
     Dosage: 1 MILLIGRAM, BID ( (PO/IM) 1-2MG (MAX 4MG IN 24 HOURS START DATE: ??-SEP-2015)
     Route: 065
     Dates: start: 201509
  195. LORAZEPAM [Suspect]
     Active Substance: LORAZEPAM
     Indication: Product used for unknown indication
     Dosage: 1 MILLIGRAM, BID ( (PO/IM) 1-2MG (MAX 4MG IN 24 HOURS
     Route: 050
     Dates: start: 201509
  196. RISPERIDONE [Suspect]
     Active Substance: RISPERIDONE
     Indication: Product used for unknown indication
     Dosage: UNK
     Route: 065
     Dates: start: 200210
  197. RISPERIDONE [Suspect]
     Active Substance: RISPERIDONE
     Indication: Product used for unknown indication
     Dosage: UNK
     Route: 065
     Dates: start: 201302
  198. RISPERIDONE [Suspect]
     Active Substance: RISPERIDONE
     Dosage: UNK
     Route: 065
     Dates: start: 200210
  199. RISPERIDONE [Suspect]
     Active Substance: RISPERIDONE
     Dosage: UNK
     Route: 065
     Dates: start: 200210
  200. RISPERIDONE [Suspect]
     Active Substance: RISPERIDONE
     Dosage: UNK
     Route: 065
     Dates: start: 200210
  201. RISPERIDONE [Suspect]
     Active Substance: RISPERIDONE
     Dosage: UNK (START DATE: FEB-2013)
     Route: 065
     Dates: start: 201302
  202. RISPERIDONE [Suspect]
     Active Substance: RISPERIDONE
     Dosage: UNK (START DATE: FEB-2013)
     Route: 065
     Dates: start: 201302
  203. RISPERIDONE [Suspect]
     Active Substance: RISPERIDONE
     Dosage: UNK (START DATE: FEB-2013);
     Route: 065
     Dates: start: 201302
  204. RISPERDAL [Suspect]
     Active Substance: RISPERIDONE
     Indication: Product used for unknown indication
     Dosage: UNK
     Route: 050
     Dates: start: 200210
  205. RISPERDAL [Suspect]
     Active Substance: RISPERIDONE
     Indication: Product used for unknown indication
     Dosage: UNK (START DATE: FEB-2013)
     Route: 065
     Dates: start: 201302
  206. VALPROATE SODIUM [Suspect]
     Active Substance: VALPROATE SODIUM
     Dosage: 500 MILLIGRAM, BID (500MG TWICE DAILY START DATE:JUL-2016)
     Route: 050
     Dates: start: 201607
  207. VALPROATE SODIUM [Suspect]
     Active Substance: VALPROATE SODIUM
     Dosage: 750 MILLIGRAM, BID (750MG TWICE DAILY START DATE: JUN-2016)
     Route: 050
     Dates: start: 201606
  208. VALPROATE SODIUM [Suspect]
     Active Substance: VALPROATE SODIUM
     Dosage: 750 MILLIGRAM, BID (750MG TWICE DAILY START DATE:MAR-2023)
     Route: 065
     Dates: start: 202303, end: 202305
  209. VALPROATE SODIUM [Suspect]
     Active Substance: VALPROATE SODIUM
     Indication: Product used for unknown indication
     Dosage: 750 MILLIGRAM, BID (750MG TWICE DAILY START DATE:MAY-2016)
     Route: 050
     Dates: start: 201605
  210. VALPROATE SODIUM [Suspect]
     Active Substance: VALPROATE SODIUM
     Dosage: 750 MILLIGRAM, BID (750MG TWICE DAILY START DATE:MAR-2023)
     Route: 050
     Dates: start: 202303, end: 202305
  211. CHOLECALCIFEROL [Concomitant]
     Active Substance: CHOLECALCIFEROL
     Indication: Product used for unknown indication
     Dosage: 800 INTERNATIONAL UNIT, QD (800 UNITS ONCE DAILY)
     Route: 065
  212. CHOLECALCIFEROL [Concomitant]
     Active Substance: CHOLECALCIFEROL
     Indication: Product used for unknown indication
  213. ENSURE COMPACT [Concomitant]
     Indication: Product used for unknown indication
     Dosage: UNK
     Route: 065
  214. FLEXITOL HEEL [Concomitant]
     Indication: Product used for unknown indication
     Dosage: TWICE DAILY
     Route: 065
  215. FLEXITOL HEEL [Concomitant]
     Indication: Product used for unknown indication
     Dosage: TWICE DAILY
     Route: 065
  216. FOLIC ACID\IRON\MINERALS\VITAMINS [Concomitant]
     Active Substance: FOLIC ACID\IRON\MINERALS\VITAMINS
     Dosage: 1 DOSAGE FORM, QD (ONE TABLET ONCE DAILY)
     Route: 065
  217. FOLIC ACID\IRON\MINERALS\VITAMINS [Concomitant]
     Active Substance: FOLIC ACID\IRON\MINERALS\VITAMINS
     Dosage: 1 DOSAGE FORM, QD (ONE TABLET ONCE DAILY)
     Route: 065
  218. FOLIC ACID\IRON\MINERALS\VITAMINS [Concomitant]
     Active Substance: FOLIC ACID\IRON\MINERALS\VITAMINS
     Indication: Product used for unknown indication
     Dosage: 1 DF, QD (ONE TABLET ONCE DAILY)
     Route: 065
  219. LACTULOSE [Concomitant]
     Active Substance: LACTULOSE
     Indication: Product used for unknown indication
     Dosage: 15 MILLILITER (MAX THREE TIMES DAILY)
     Route: 065
  220. LACTULOSE [Concomitant]
     Active Substance: LACTULOSE
     Indication: Product used for unknown indication
     Dosage: 15 MILLILITER (MAX THREE TIMES DAILY)
     Route: 065
  221. ASCORBIC ACID\VITAMIN B COMPLEX [Concomitant]
     Active Substance: ASCORBIC ACID\VITAMIN B COMPLEX
     Indication: Product used for unknown indication
     Dosage: 1 DOSAGE FORM, BID (ONE TABLET TWICE DAILY)
     Route: 065
  222. ASCORBIC ACID\VITAMIN B COMPLEX [Concomitant]
     Active Substance: ASCORBIC ACID\VITAMIN B COMPLEX
     Indication: Product used for unknown indication
  223. ACETAMINOPHEN [Concomitant]
     Active Substance: ACETAMINOPHEN
     Indication: Product used for unknown indication
     Dosage: 1 GRAM (MAX 4G IN 24 HOURS)
     Route: 065
  224. ACETAMINOPHEN [Concomitant]
     Active Substance: ACETAMINOPHEN
     Indication: Product used for unknown indication
     Dosage: 1 GRAM (MAX 4G IN 24 HOURS)
     Route: 065
  225. PROCYCLIDINE [Concomitant]
     Active Substance: PROCYCLIDINE
     Indication: Product used for unknown indication
     Dosage: 2.5 MILLIGRAM (MAX 10MG IN 24 HOURS)
     Route: 065
  226. PROCYCLIDINE [Concomitant]
     Active Substance: PROCYCLIDINE
     Indication: Product used for unknown indication
     Dosage: 2.5 MILLIGRAM (MAX 10MG IN 24 HOURS)
     Route: 065
  227. PROMETHAZINE [Concomitant]
     Active Substance: PROMETHAZINE HYDROCHLORIDE
     Indication: Product used for unknown indication
     Dosage: 25 MILLIGRAM (MAX 100MG IN 25 HOURS)
     Route: 065
  228. PROMETHAZINE [Concomitant]
     Active Substance: PROMETHAZINE HYDROCHLORIDE
     Indication: Product used for unknown indication
     Dosage: 25 MILLIGRAM (MAX 100MG IN 25 HOURS)
     Route: 065
  229. THIAMINE [Concomitant]
     Active Substance: THIAMINE
     Dosage: 100 MILLIGRAM, BID (100MG TWICE DAILY)
     Route: 065
  230. THIAMINE [Concomitant]
     Active Substance: THIAMINE
     Dosage: 100 MILLIGRAM, BID (100MG TWICE DAILY)
     Route: 065
  231. THIAMINE [Concomitant]
     Active Substance: THIAMINE
     Indication: Product used for unknown indication
     Dosage: 100 MILLIGRAM, BID (100MG TWICE DAILY)
     Route: 065
  232. THIAMINE [Concomitant]
     Active Substance: THIAMINE
     Dosage: 100 MILLIGRAM, BID (100MG TWICE DAILY)
     Route: 065
  233. VITAMIN B [Concomitant]
     Active Substance: VITAMIN B
     Indication: Product used for unknown indication
     Dosage: 1 DOSAGE FORM, BID (ONE TABLET TWICE DAILY)
     Route: 065
  234. VITAMIN B12 [Concomitant]
     Active Substance: CYANOCOBALAMIN
     Indication: Product used for unknown indication
     Dosage: 1 DOSAGE FORM, BID (ONE TABLET TWICE DAILY)
     Route: 065

REACTIONS (33)
  - Hallucination, auditory [Not Recovered/Not Resolved]
  - Delusion of grandeur [Unknown]
  - Neglect of personal appearance [Unknown]
  - Aggression [Unknown]
  - Accidental exposure to product [Unknown]
  - COVID-19 [Unknown]
  - Delusion [Not Recovered/Not Resolved]
  - Suicidal ideation [Unknown]
  - Mental impairment [Unknown]
  - Cardiac arrest [Unknown]
  - Pneumonia aspiration [Unknown]
  - Dystonia [Unknown]
  - Treatment noncompliance [Unknown]
  - Thinking abnormal [Not Recovered/Not Resolved]
  - Weight decreased [Unknown]
  - Eating disorder [Unknown]
  - Strabismus [Unknown]
  - Slow speech [Unknown]
  - Acne [Unknown]
  - Vitamin D decreased [Unknown]
  - Red blood cell sedimentation rate decreased [Unknown]
  - Psoriasis [Unknown]
  - Depressed mood [Unknown]
  - Blood prolactin increased [Unknown]
  - Withdrawal syndrome [Unknown]
  - Orthostatic hypotension [Unknown]
  - Insomnia [Unknown]
  - Sedation [Unknown]
  - Neutrophil count decreased [Not Recovered/Not Resolved]
  - Lymphocyte count decreased [Unknown]
  - Overdose [Unknown]
  - Drug ineffective [Unknown]
  - Off label use [Unknown]

NARRATIVE: CASE EVENT DATE: 20030101
